FAERS Safety Report 24036505 (Version 1)
Quarter: 2024Q2

REPORT INFORMATION
  Report Type: Spontaneous
  Country: US (occurrence: None)
  Receive Date: 20240630
  Receipt Date: 20240630
  Transmission Date: 20240716
  Serious: Yes (Disabling)
  Sender: FDA-Public Use
  Company Number: None

PATIENT
  Age: 76 Year
  Sex: Female
  Weight: 59.4 kg

DRUGS (10)
  1. CIMZIA [Suspect]
     Active Substance: CERTOLIZUMAB PEGOL
     Indication: Rheumatoid arthritis
     Dosage: OTHER ROUTE : INFUSION;?
     Route: 050
     Dates: start: 20231201
  2. PROTONIX [Concomitant]
     Active Substance: PANTOPRAZOLE SODIUM
  3. LOSARTAN [Concomitant]
     Active Substance: LOSARTAN
  4. CYMBALTA [Concomitant]
     Active Substance: DULOXETINE HYDROCHLORIDE
  5. PREDNISONE [Concomitant]
     Active Substance: PREDNISONE
  6. doluxatine [Concomitant]
  7. ALBUTEROL [Concomitant]
     Active Substance: ALBUTEROL
  8. VITAMINS [Concomitant]
     Active Substance: VITAMINS
  9. CALCIUM [Concomitant]
     Active Substance: CALCIUM
  10. TYLENOL ARTHRITIS PAIN [Concomitant]
     Active Substance: ACETAMINOPHEN

REACTIONS (3)
  - Sinusitis [None]
  - Pharyngitis streptococcal [None]
  - Respiratory tract infection [None]

NARRATIVE: CASE EVENT DATE: 20240610
